FAERS Safety Report 7983252-0 (Version None)
Quarter: 2011Q4

REPORT INFORMATION
  Report Type: 
  Country: None (occurrence: None)
  Receive Date: 20111215
  Receipt Date: 20111212
  Transmission Date: 20120403
  Serious: Yes (Hospitalization)
  Sender: FDA-Public Use
  Company Number: PHHY2011JP105298

PATIENT
  Age: 50 Year
  Sex: Male

DRUGS (7)
  1. SELEGILINE [Suspect]
     Indication: DEPRESSION
     Dosage: 10 MG, DAILY
     Dates: start: 20050501
  2. TRAZODONE HCL [Suspect]
     Dosage: 2250 MG, UNK
     Dates: start: 20101101
  3. VALPROATE SODIUM [Suspect]
     Dosage: 16000 MG, UNK
     Dates: start: 20101101
  4. NITRAZEPAM [Suspect]
     Dosage: 70 MG, UNK
     Dates: start: 20101101
  5. CARBAMAZEPINE [Suspect]
     Dosage: 8600 MG, UNK
     Dates: start: 20101101
  6. SELEGILINE [Suspect]
     Dosage: 195 MG, UNK
     Dates: start: 20101101
  7. TRAZODONE HCL [Suspect]
     Dosage: UNK

REACTIONS (11)
  - HALLUCINATION, VISUAL [None]
  - PNEUMONIA ASPIRATION [None]
  - HYPERTENSION [None]
  - SUICIDE ATTEMPT [None]
  - RESPIRATORY FAILURE [None]
  - INTENTIONAL OVERDOSE [None]
  - HYPERHIDROSIS [None]
  - MYOCLONUS [None]
  - COMA [None]
  - GRAND MAL CONVULSION [None]
  - CONFUSIONAL STATE [None]
